FAERS Safety Report 6660225-1 (Version None)
Quarter: 2010Q1

REPORT INFORMATION
  Report Type: 
  Country: None (occurrence: None)
  Receive Date: 20100331
  Receipt Date: 20100303
  Transmission Date: 20100710
  Serious: No
  Sender: FDA-Public Use
  Company Number: 2009BI030441

PATIENT
  Sex: Female

DRUGS (1)
  1. TYSABRI [Suspect]
     Indication: MULTIPLE SCLEROSIS
     Route: 042
     Dates: start: 20090318

REACTIONS (6)
  - ANXIETY [None]
  - BALANCE DISORDER [None]
  - COGNITIVE DISORDER [None]
  - CONFUSIONAL STATE [None]
  - HEADACHE [None]
  - MEMORY IMPAIRMENT [None]
